FAERS Safety Report 9369833 (Version 3)
Quarter: 2013Q3

REPORT INFORMATION
  Report Type: Spontaneous
  Country: JP (occurrence: JP)
  Receive Date: 20130626
  Receipt Date: 20130813
  Transmission Date: 20140515
  Serious: Yes (Other)
  Sender: FDA-Public Use
  Company Number: JP-BRISTOL-MYERS SQUIBB COMPANY-19041334

PATIENT
  Age: 39 Year
  Sex: Female
  Weight: 60 kg

DRUGS (4)
  1. ORENCIA FOR INJ 250 MG/VIAL [Suspect]
     Indication: RHEUMATOID ARTHRITIS
     Route: 042
     Dates: start: 20120731
  2. ALESION [Concomitant]
     Indication: DERMATITIS ALLERGIC
     Dosage: TABS
     Route: 048
     Dates: start: 20110902
  3. LOXONIN [Concomitant]
     Indication: RHEUMATOID ARTHRITIS
     Dosage: TABS
     Route: 048
     Dates: start: 20120626
  4. SELBEX [Concomitant]
     Indication: GASTRITIS
     Dosage: CAPS
     Route: 048
     Dates: start: 20120710

REACTIONS (1)
  - Thrombophlebitis [Recovering/Resolving]
